FAERS Safety Report 9513773 (Version 1)
Quarter: 2013Q3

REPORT INFORMATION
  Report Type: Spontaneous
  Country: US (occurrence: US)
  Receive Date: 20130910
  Receipt Date: 20130910
  Transmission Date: 20140515
  Serious: No
  Sender: FDA-Public Use
  Company Number: US-TEVA-430686USA

PATIENT
  Age: 30 Year
  Sex: Female
  Weight: 72.64 kg

DRUGS (1)
  1. PLAN B ONE-STEP [Suspect]
     Route: 048
     Dates: start: 20130830, end: 20130830

REACTIONS (1)
  - Metrorrhagia [Recovered/Resolved]
